FAERS Safety Report 15673871 (Version 1)
Quarter: 2018Q4

REPORT INFORMATION
  Report Type: Report from Study
  Country: JP (occurrence: JP)
  Receive Date: 20181129
  Receipt Date: 20181129
  Transmission Date: 20190205
  Serious: Yes (Other)
  Sender: FDA-Public Use
  Company Number: PHHY2013JP167328

PATIENT
  Age: 50 Year
  Sex: Female
  Weight: 63 kg

DRUGS (7)
  1. ZOMETA [Suspect]
     Active Substance: ZOLEDRONIC ACID
     Indication: METASTASES TO BONE
     Route: 041
     Dates: start: 20120409
  2. XELODA [Suspect]
     Active Substance: CAPECITABINE
     Indication: PRODUCT USED FOR UNKNOWN INDICATION
     Dosage: 3000 MG,
     Route: 048
     Dates: start: 20111205, end: 20120116
  3. TYKERB [Suspect]
     Active Substance: LAPATINIB DITOSYLATE
     Indication: BREAST CANCER
     Dosage: 1250 MG,
     Route: 048
     Dates: start: 20111205, end: 20120723
  4. XELODA [Suspect]
     Active Substance: CAPECITABINE
     Dosage: 3000 MG,
     Route: 048
     Dates: start: 20120807, end: 20121028
  5. TYKERB [Suspect]
     Active Substance: LAPATINIB DITOSYLATE
     Dosage: 1250 MG,
     Route: 048
     Dates: start: 20120806, end: 20121028
  6. DEPAS [Concomitant]
     Active Substance: ETIZOLAM
     Indication: INSOMNIA
     Route: 048
     Dates: start: 20120206, end: 20120408
  7. GOODMIN [Concomitant]
     Active Substance: BROTIZOLAM
     Indication: INSOMNIA
     Route: 048
     Dates: start: 20120409

REACTIONS (5)
  - Skin disorder [Recovered/Resolved]
  - Neuropathy peripheral [Recovering/Resolving]
  - Hepatic enzyme increased [Recovered/Resolved]
  - Paronychia [Recovering/Resolving]
  - Palmar-plantar erythrodysaesthesia syndrome [Recovered/Resolved]

NARRATIVE: CASE EVENT DATE: 20111216
